FAERS Safety Report 18110546 (Version 7)
Quarter: 2020Q4

REPORT INFORMATION
  Report Type: Spontaneous
  Country: PT (occurrence: PT)
  Receive Date: 20200804
  Receipt Date: 20201008
  Transmission Date: 20210113
  Serious: Yes (Death, Hospitalization, Other)
  Sender: FDA-Public Use
  Company Number: NVSC2020PT214565

PATIENT
  Age: 44 Year
  Sex: Female

DRUGS (5)
  1. INFLIXIMAB [Suspect]
     Active Substance: INFLIXIMAB
     Indication: CROHN^S DISEASE
     Dosage: UNK
     Route: 065
  2. ADALIMUMAB [Suspect]
     Active Substance: ADALIMUMAB
     Indication: CROHN^S DISEASE
     Dosage: UNK
     Route: 058
  3. INFLIXIMAB [Suspect]
     Active Substance: INFLIXIMAB
     Indication: ANAL ABSCESS
  4. MESALAZINE [Suspect]
     Active Substance: MESALAMINE
     Indication: CROHN^S DISEASE
     Dosage: UNK
     Route: 065
  5. AZATHIOPRINE. [Suspect]
     Active Substance: AZATHIOPRINE
     Indication: CROHN^S DISEASE
     Dosage: UNK
     Route: 065

REACTIONS (12)
  - Crohn^s disease [Fatal]
  - Malignant transformation [Fatal]
  - Sepsis [Fatal]
  - Anal fistula [Fatal]
  - Drug ineffective [Unknown]
  - Anal squamous cell carcinoma [Fatal]
  - Disease recurrence [Fatal]
  - Abscess [Unknown]
  - Disease progression [Fatal]
  - Anal cancer [Fatal]
  - Off label use [Fatal]
  - Papilloma viral infection [Fatal]
